FAERS Safety Report 7671222-1 (Version None)
Quarter: 2011Q3

REPORT INFORMATION
  Report Type: 
  Country: None (occurrence: None)
  Receive Date: 20110809
  Receipt Date: 20110731
  Transmission Date: 20111222
  Serious: Yes (Death)
  Sender: FDA-Public Use
  Company Number: IL-NOVOPROD-332879

PATIENT

DRUGS (1)
  1. NOVOSEVEN RT [Suspect]
     Indication: HAEMORRHAGE
     Dosage: 5 MG, UNK
     Dates: start: 20110701, end: 20110701

REACTIONS (1)
  - DEATH [None]
